FAERS Safety Report 4726825-0 (Version None)
Quarter: 2005Q3

REPORT INFORMATION
  Report Type: 
  Country: None (occurrence: None)
  Receive Date: 20050725
  Receipt Date: 20050318
  Transmission Date: 20060218
  Serious: No
  Sender: FDA-Public Use
  Company Number: USA050393648

PATIENT
  Age: 6 Year
  Sex: Male

DRUGS (1)
  1. STRATTERA [Suspect]
     Dates: start: 20050318

REACTIONS (1)
  - RETCHING [None]
